FAERS Safety Report 21199714 (Version 1)
Quarter: 2022Q3

REPORT INFORMATION
  Report Type: Spontaneous
  Country: US (occurrence: US)
  Receive Date: 20220811
  Receipt Date: 20220811
  Transmission Date: 20221027
  Serious: No
  Sender: FDA-Public Use
  Company Number: US-AUROBINDO-AUR-APL-2022-024691

PATIENT
  Age: 69 Year
  Sex: Female

DRUGS (1)
  1. IMATINIB [Suspect]
     Active Substance: IMATINIB
     Indication: Product used for unknown indication
     Dosage: 400 MILLIGRAM
     Route: 065

REACTIONS (7)
  - Gastrooesophageal reflux disease [Unknown]
  - Hyperhidrosis [Unknown]
  - Rash pruritic [Unknown]
  - Stomatitis [Unknown]
  - Salivary gland disorder [Unknown]
  - Anaemia [Unknown]
  - Tendon rupture [Unknown]
